FAERS Safety Report 7027593-2 (Version None)
Quarter: 2010Q4

REPORT INFORMATION
  Report Type: 
  Country: None (occurrence: None)
  Receive Date: 20101004
  Receipt Date: 20100923
  Transmission Date: 20110411
  Serious: Yes (Hospitalization, Other)
  Sender: FDA-Public Use
  Company Number: CO-WYE-H17773810

PATIENT
  Sex: Female

DRUGS (10)
  1. RAPAMUNE [Suspect]
     Indication: PROPHYLAXIS AGAINST TRANSPLANT REJECTION
     Route: 048
     Dates: start: 20040101, end: 20090101
  2. RAPAMUNE [Suspect]
     Dosage: ^2 MG/DAY (DAY ONE) AND 1 MG/DAY (DAY TWO) UNTIL THE END OF THE WEEK^
     Dates: start: 20090101
  3. ENALAPRIL MALEATE [Concomitant]
     Indication: HYPERTENSION
  4. MYCOPHENOLIC ACID [Concomitant]
     Indication: PROPHYLAXIS AGAINST TRANSPLANT REJECTION
     Dates: start: 20040101
  5. ATORVASTATIN [Suspect]
     Indication: HYPERCHOLESTEROLAEMIA
     Dates: start: 20070101
  6. OMEPRAZOLE [Concomitant]
     Indication: PROPHYLAXIS
     Dates: start: 20040101
  7. ISOPHANE INSULIN [Concomitant]
     Dosage: UNKNOWN
  8. INSULIN [Concomitant]
     Dosage: UNKNOWN
  9. GABAPENTIN [Suspect]
  10. PREDNISOLONE [Concomitant]
     Indication: PROPHYLAXIS AGAINST TRANSPLANT REJECTION
     Dates: start: 20040101

REACTIONS (3)
  - CELLULITIS [None]
  - GASTRIC DISORDER [None]
  - LIMB INJURY [None]
